FAERS Safety Report 17007902 (Version 1)
Quarter: 2019Q4

REPORT INFORMATION
  Report Type: Spontaneous
  Country: US (occurrence: US)
  Receive Date: 20191108
  Receipt Date: 20191108
  Transmission Date: 20200122
  Serious: Yes (Other)
  Sender: FDA-Public Use
  Company Number: PHHY2019US221188

PATIENT

DRUGS (3)
  1. PALONOSETRON. [Suspect]
     Active Substance: PALONOSETRON HYDROCHLORIDE
     Indication: NEUROENDOCRINE TUMOUR
     Dosage: 0.25 MG, UNK
     Route: 042
  2. LUTETIUM (177LU) OXODOTREOTIDE [Suspect]
     Active Substance: LUTETIUM OXODOTREOTIDE LU-177
     Indication: NEUROENDOCRINE TUMOUR
     Dosage: 200 MCI, (20-30 MIN EVERY 8 WEEKS FOR 4 DOSES)
     Route: 065
  3. LYSINE ARGININE [Suspect]
     Active Substance: ARGININE\LYSINE
     Indication: NEUROENDOCRINE TUMOUR
     Dosage: 25/25 MG/L, IN NORMAL SALINE, GIVEN OVER 4 HOURS
     Route: 041

REACTIONS (2)
  - Confusional state [Unknown]
  - Bone pain [Unknown]
